FAERS Safety Report 9123888 (Version 1)
Quarter: 2013Q1

REPORT INFORMATION
  Report Type: Spontaneous
  Country: IT (occurrence: IT)
  Receive Date: 20130116
  Receipt Date: 20130116
  Transmission Date: 20140127
  Serious: Yes (Hospitalization)
  Sender: FDA-Public Use
  Company Number: IT-PFIZER INC-2013010430

PATIENT
  Age: 39 Year
  Sex: Male

DRUGS (5)
  1. TRIATEC [Suspect]
     Indication: HYPERTENSION
     Dosage: 5 MG, DAILY
     Route: 048
     Dates: start: 20120101, end: 20121222
  2. DOXAZOSIN [Concomitant]
     Dosage: UNK
     Dates: start: 20120101, end: 20121222
  3. ZYLORIC [Concomitant]
     Dosage: UNK
     Dates: start: 20120101, end: 20121222
  4. MICARDIS [Concomitant]
     Dosage: UNK
     Dates: start: 20120101, end: 20121222
  5. LOBIVON [Concomitant]

REACTIONS (2)
  - Hyperkalaemia [Recovering/Resolving]
  - Renal failure chronic [Recovering/Resolving]
